FAERS Safety Report 24660276 (Version 2)
Quarter: 2024Q4

REPORT INFORMATION
  Report Type: Spontaneous
  Country: TW (occurrence: TW)
  Receive Date: 20241125
  Receipt Date: 20241127
  Transmission Date: 20250114
  Serious: Yes (Death, Hospitalization, Other)
  Sender: PFIZER
  Company Number: TW-PFIZER INC-PV202400151684

PATIENT
  Age: 62 Year
  Sex: Female
  Weight: 48 kg

DRUGS (4)
  1. MYCOBUTIN [Suspect]
     Active Substance: RIFABUTIN
     Indication: Tuberculosis
     Dosage: 300 MG, 1X/DAY
     Route: 048
     Dates: start: 20240716, end: 20240930
  2. PYRAZINAMIDE [Suspect]
     Active Substance: PYRAZINAMIDE
     Indication: Tuberculosis
     Dosage: 1250 MG, 1X/DAY
     Route: 048
     Dates: start: 20210813, end: 20240930
  3. EBUTOL [Concomitant]
     Active Substance: ETHAMBUTOL HYDROCHLORIDE
     Indication: Tuberculosis
     Dosage: 800 MG, 1X/DAY
     Dates: start: 20240716, end: 20240930
  4. ISONIAZID [Concomitant]
     Active Substance: ISONIAZID
     Dosage: 250 MG, OD

REACTIONS (24)
  - Hepatitis acute [Fatal]
  - Jaundice [Fatal]
  - Coagulopathy [Fatal]
  - Hypofibrinogenaemia [Fatal]
  - Hypotension [Fatal]
  - Asthenia [Unknown]
  - Temperature intolerance [Unknown]
  - Confusional state [Unknown]
  - Hyperbilirubinaemia [Unknown]
  - Respiratory failure [Unknown]
  - Septic shock [Unknown]
  - Cardiac arrest [Unknown]
  - Respiratory distress [Unknown]
  - Depressed level of consciousness [Unknown]
  - Vision blurred [Unknown]
  - Oedema peripheral [Unknown]
  - Dizziness [Unknown]
  - Aspartate aminotransferase increased [Recovering/Resolving]
  - Fatigue [Unknown]
  - Arthralgia [Unknown]
  - Hyperuricaemia [Unknown]
  - Chest discomfort [Unknown]
  - Dyspnoea [Unknown]
  - Oxygen saturation decreased [Unknown]

NARRATIVE: CASE EVENT DATE: 20240425
